FAERS Safety Report 25686503 (Version 1)
Quarter: 2025Q3

REPORT INFORMATION
  Report Type: Spontaneous
  Country: CH (occurrence: CH)
  Receive Date: 20250815
  Receipt Date: 20250815
  Transmission Date: 20251021
  Serious: Yes (Death, Other)
  Sender: JOHNSON AND JOHNSON
  Company Number: CH-JNJFOC-20250817624

PATIENT
  Age: 70 Year
  Sex: Male

DRUGS (1)
  1. RIVAROXABAN [Suspect]
     Active Substance: RIVAROXABAN
     Indication: Product used for unknown indication
     Route: 048

REACTIONS (5)
  - Retroperitoneal haemorrhage [Fatal]
  - Cardiac arrest [Unknown]
  - Haemoglobin decreased [Unknown]
  - Haematuria [Unknown]
  - Drug ineffective [Unknown]
